FAERS Safety Report 7214179-X (Version None)
Quarter: 2011Q1

REPORT INFORMATION
  Report Type: 
  Country: None (occurrence: None)
  Receive Date: 20110107
  Receipt Date: 20101228
  Transmission Date: 20110831
  Serious: Yes (Other)
  Sender: FDA-Public Use
  Company Number: JP-ASTELLAS-2011JP000009

PATIENT
  Age: 41 Year
  Sex: Female

DRUGS (11)
  1. TACROLIMUS [Suspect]
     Indication: LUPUS NEPHRITIS
     Dosage: 3 MG, UNKNOWN/D
     Route: 048
     Dates: start: 20070807, end: 20080223
  2. BENET [Concomitant]
     Dosage: UNK
     Route: 048
  3. MUCOSTA [Concomitant]
     Dosage: UNK
     Route: 048
  4. PREDNISOLONE [Concomitant]
     Indication: LUPUS NEPHRITIS
     Dosage: 17 MG, UNKNOWN/D
     Route: 048
     Dates: end: 20071123
  5. ALFAROL [Concomitant]
     Dosage: UNK
     Route: 048
  6. TACROLIMUS [Suspect]
     Dosage: 3 MG, UNKNOWN/D
     Route: 048
     Dates: start: 20080322
  7. FERROUS CITRATE [Concomitant]
     Dosage: UNK
     Route: 048
  8. ASPIRIN [Concomitant]
     Dosage: UNK
     Route: 048
  9. TACROLIMUS [Suspect]
     Dosage: 1.5 MG, UNKNOWN/D
     Route: 048
     Dates: start: 20080308, end: 20080321
  10. PREDNISOLONE [Concomitant]
     Dosage: 16 MG, UNKNOWN/D
     Route: 048
     Dates: start: 20071124, end: 20080725
  11. PREDNISOLONE [Concomitant]
     Dosage: 15 MG, UNKNOWN/D
     Route: 048
     Dates: start: 20080726

REACTIONS (1)
  - GINGIVITIS [None]
